FAERS Safety Report 19847373 (Version 2)
Quarter: 2021Q4

REPORT INFORMATION
  Report Type: Spontaneous
  Country: IT (occurrence: IT)
  Receive Date: 20210917
  Receipt Date: 20211110
  Transmission Date: 20220303
  Serious: Yes (Other)
  Sender: FDA-Public Use
  Company Number: IT-INCYTE CORPORATION-2021IN008318

PATIENT
  Sex: Female

DRUGS (2)
  1. ICLUSIG [Suspect]
     Active Substance: PONATINIB
     Indication: Blast crisis in myelogenous leukaemia
     Dosage: 45 MILLIGRAM, QD
     Route: 048
     Dates: start: 20210727, end: 20210901
  2. ICLUSIG [Suspect]
     Active Substance: PONATINIB
     Indication: Philadelphia positive chronic myeloid leukaemia
     Dosage: 15 MILLIGRAM, QD
     Route: 065
     Dates: start: 20211031

REACTIONS (2)
  - Ichthyosis [Recovered/Resolved]
  - Pancytopenia [Unknown]
